FAERS Safety Report 12949009 (Version 1)
Quarter: 2016Q4

REPORT INFORMATION
  Report Type: Spontaneous
  Country: US (occurrence: US)
  Receive Date: 20161116
  Receipt Date: 20161116
  Transmission Date: 20170207
  Serious: No
  Sender: FDA-Public Use
  Company Number: US-TOLMAR, INC.-2015US006754

PATIENT
  Sex: Female

DRUGS (1)
  1. ELIGARD [Suspect]
     Active Substance: LEUPROLIDE ACETATE
     Dosage: UNK MG, UNK

REACTIONS (2)
  - Accidental exposure to product [Unknown]
  - Product leakage [Unknown]

NARRATIVE: CASE EVENT DATE: 20150727
